FAERS Safety Report 5416157-X (Version None)
Quarter: 2007Q3

REPORT INFORMATION
  Report Type: 
  Country: None (occurrence: None)
  Receive Date: 20070718
  Receipt Date: 20060803
  Transmission Date: 20080115
  Serious: Yes (Death)
  Sender: FDA-Public Use
  Company Number: 2005170895

PATIENT
  Age: 55 Year
  Sex: Male
  Weight: 95.2554 kg

DRUGS (4)
  1. CELEBREX [Suspect]
     Indication: ARTHRITIS
     Dosage: 200 MG (200 MG, 1 IN 1 D)
     Dates: start: 20021202, end: 20031018
  2. CELEBREX [Suspect]
     Indication: MUSCULOSKELETAL PAIN
     Dosage: 200 MG (200 MG, 1 IN 1 D)
     Dates: start: 20021202, end: 20031018
  3. VIOXX [Suspect]
     Indication: ARTHRALGIA
     Dates: start: 20021201, end: 20031018
  4. VIOXX [Suspect]
     Indication: MUSCULOSKELETAL PAIN
     Dates: start: 20021201, end: 20031018

REACTIONS (1)
  - MYOCARDIAL INFARCTION [None]
